FAERS Safety Report 9587329 (Version 1)
Quarter: 2013Q4

REPORT INFORMATION
  Report Type: Report from Study
  Country: US (occurrence: US)
  Receive Date: 20131003
  Receipt Date: 20131003
  Transmission Date: 20140711
  Serious: Yes (Hospitalization)
  Sender: FDA-Public Use
  Company Number: US-ASTRAZENECA-2013SE71696

PATIENT
  Age: 72 Year
  Sex: Male

DRUGS (11)
  1. CASODEX [Suspect]
     Indication: PROSTATE CANCER
     Route: 048
     Dates: start: 20130512, end: 20130827
  2. DOCETAXEL [Suspect]
     Indication: PROSTATE CANCER
     Route: 042
     Dates: start: 20130530, end: 20130711
  3. DOCETAXEL [Suspect]
     Indication: PROSTATE CANCER
     Route: 042
     Dates: start: 20130801, end: 20130822
  4. ZOLADEX [Suspect]
     Indication: PROSTATE CANCER
     Dosage: 10.8 MG EVERY 3 MONTHS X 2
     Route: 058
     Dates: start: 20130517, end: 20130801
  5. RADIOTHERAPY [Suspect]
     Indication: PROSTATE CANCER
     Route: 065
  6. ASPIRIN [Concomitant]
  7. CILAZAPRIL [Concomitant]
  8. AMLODIPINE [Concomitant]
  9. METOPROLOL [Concomitant]
  10. FLUOXITINE [Concomitant]
  11. SIMVASTATIN [Concomitant]

REACTIONS (3)
  - Dehydration [Unknown]
  - Depression [Unknown]
  - Fatigue [Unknown]
